FAERS Safety Report 7775678-5 (Version None)
Quarter: 2011Q3

REPORT INFORMATION
  Report Type: 
  Country: None (occurrence: None)
  Receive Date: 20110923
  Receipt Date: 20110916
  Transmission Date: 20111222
  Serious: Yes (Other)
  Sender: FDA-Public Use
  Company Number: US-GLAXOSMITHKLINE-A0944968A

PATIENT
  Age: 80 Year
  Sex: Female

DRUGS (3)
  1. ADVAIR DISKUS 100/50 [Suspect]
     Indication: ASTHMA
     Dosage: 1PUFF TWICE PER DAY
     Route: 055
     Dates: start: 20110601
  2. BUDESONIDE [Concomitant]
  3. DILTIAZEM [Concomitant]

REACTIONS (5)
  - SENSATION OF HEAVINESS [None]
  - DYSPHONIA [None]
  - MACULAR DEGENERATION [None]
  - OSTEOPOROSIS [None]
  - FATIGUE [None]
